FAERS Safety Report 4972978-9 (Version None)
Quarter: 2006Q2

REPORT INFORMATION
  Report Type: 
  Country: None (occurrence: None)
  Receive Date: 20060414
  Receipt Date: 20060411
  Transmission Date: 20061013
  Serious: Yes (Hospitalization, Other)
  Sender: FDA-Public Use
  Company Number: US-GLAXOSMITHKLINE-A0601388A

PATIENT
  Age: 59 Year
  Sex: Male

DRUGS (3)
  1. LAMICTAL [Suspect]
     Indication: BIPOLAR DISORDER
     Dosage: 100MG PER DAY
     Route: 048
     Dates: start: 20060209, end: 20060301
  2. PROZAC [Concomitant]
  3. CONCERTA [Concomitant]

REACTIONS (7)
  - ABASIA [None]
  - DISTURBANCE IN ATTENTION [None]
  - EATING DISORDER [None]
  - EYE SWELLING [None]
  - IMMUNE SYSTEM DISORDER [None]
  - PAIN [None]
  - RASH [None]
